FAERS Safety Report 7650359-7 (Version None)
Quarter: 2011Q3

REPORT INFORMATION
  Report Type: 
  Country: None (occurrence: None)
  Receive Date: 20110802
  Receipt Date: 20110720
  Transmission Date: 20111222
  Serious: Yes (Other)
  Sender: FDA-Public Use
  Company Number: US-ASTRAZENECA-2008UW25749

PATIENT
  Age: 52 Year
  Sex: Female
  Weight: 110.7 kg

DRUGS (9)
  1. CLONAZEPAM [Concomitant]
     Dates: start: 20051213
  2. ABILIFY [Concomitant]
     Dates: start: 20090101
  3. SEROQUEL [Suspect]
     Indication: DEPRESSION
     Dosage: 100 TO 600 MG
     Route: 048
     Dates: start: 20051001, end: 20071201
  4. GEODON [Concomitant]
     Dates: start: 20050101
  5. UNITHROID [Concomitant]
     Dosage: 300 MCG
     Dates: start: 20060404
  6. SEROQUEL [Suspect]
     Indication: INSOMNIA
     Dosage: 100 TO 600 MG
     Route: 048
     Dates: start: 20051001, end: 20071201
  7. RISPERDAL [Concomitant]
     Dates: start: 20080101
  8. ZYPREXA [Concomitant]
  9. TEMAZEPAM [Concomitant]
     Dates: start: 20070404

REACTIONS (4)
  - GASTROINTESTINAL DISORDER [None]
  - DIVERTICULITIS [None]
  - DIABETES MELLITUS [None]
  - PANCREATITIS [None]
